FAERS Safety Report 18320904 (Version 2)
Quarter: 2020Q4

REPORT INFORMATION
  Report Type: Report from Study
  Country: None (occurrence: US)
  Receive Date: 20200929
  Receipt Date: 20201014
  Transmission Date: 20210113
  Serious: Yes (Other)
  Sender: FDA-Public Use
  Company Number: US-ABBVIE-20K-163-3577784-00

PATIENT
  Sex: Male

DRUGS (1)
  1. HUMIRA [Suspect]
     Active Substance: ADALIMUMAB
     Indication: HIDRADENITIS
     Dosage: CITRATE FREE
     Route: 058

REACTIONS (6)
  - Aortic aneurysm [Unknown]
  - Hiatus hernia [Unknown]
  - Abdominal hernia [Unknown]
  - Peripheral artery aneurysm [Unknown]
  - Intervertebral disc disorder [Unknown]
  - Nephrolithiasis [Unknown]
